FAERS Safety Report 9633101 (Version 1)
Quarter: 2013Q4

REPORT INFORMATION
  Report Type: Spontaneous
  Country: NL (occurrence: NL)
  Receive Date: 20131018
  Receipt Date: 20131018
  Transmission Date: 20140711
  Serious: Yes (Other)
  Sender: FDA-Public Use
  Company Number: NL-AMGEN-NLDSP2013072618

PATIENT
  Age: 83 Year
  Sex: Female

DRUGS (2)
  1. NPLATE [Suspect]
     Indication: PRODUCT USED FOR UNKNOWN INDICATION
     Dosage: 9 MUG, QWK
     Route: 058
     Dates: start: 20110421
  2. PREDNISON [Concomitant]
     Dosage: UNK
     Route: 065

REACTIONS (1)
  - Drug ineffective [Unknown]
